FAERS Safety Report 10598215 (Version 1)
Quarter: 2014Q4

REPORT INFORMATION
  Report Type: Spontaneous
  Country: US (occurrence: None)
  Receive Date: 20141120
  Receipt Date: 20141120
  Transmission Date: 20150529
  Serious: Yes (Other)
  Sender: FDA-Public Use
  Company Number: None

PATIENT
  Age: 62 Year
  Sex: Male

DRUGS (4)
  1. IBUPROFEN. [Concomitant]
     Active Substance: IBUPROFEN
  2. DEXAMETHASON [Concomitant]
     Active Substance: DEXAMETHASONE
  3. OXYCODONE [Concomitant]
     Active Substance: OXYCODONE
  4. ZYTIGA [Suspect]
     Active Substance: ABIRATERONE ACETATE
     Indication: PROSTATE CANCER
     Route: 048
     Dates: start: 20140318, end: 201411

REACTIONS (1)
  - Disease progression [None]

NARRATIVE: CASE EVENT DATE: 201411
